FAERS Safety Report 17008417 (Version 1)
Quarter: 2019Q4

REPORT INFORMATION
  Report Type: Spontaneous
  Country: DE (occurrence: DE)
  Receive Date: 20191108
  Receipt Date: 20191108
  Transmission Date: 20200122
  Serious: Yes (Other)
  Sender: FDA-Public Use
  Company Number: DE-EMD SERONO-E2B_90072062

PATIENT
  Age: 42 Year
  Sex: Female

DRUGS (1)
  1. REBIF [Suspect]
     Active Substance: INTERFERON BETA-1A
     Indication: MULTIPLE SCLEROSIS
     Dosage: THE PATIENT WAS TAKING REBIF SINCE 11 YEARS WITH 44 (UNSPECIFIED UNIT) DOSE.
     Route: 058
     Dates: end: 2018

REACTIONS (10)
  - Injection site erythema [Unknown]
  - Multiple sclerosis relapse [Unknown]
  - Injection site induration [Unknown]
  - Hepatic enzyme increased [Unknown]
  - Lipoedema [Unknown]
  - Acute disseminated encephalomyelitis [Unknown]
  - Injection site pain [Unknown]
  - Injection site necrosis [Recovered/Resolved]
  - Depression [Unknown]
  - Obesity [Unknown]

NARRATIVE: CASE EVENT DATE: 2017
